FAERS Safety Report 15160419 (Version 1)
Quarter: 2018Q3

REPORT INFORMATION
  Report Type: Report from Study
  Country: US (occurrence: US)
  Receive Date: 20180718
  Receipt Date: 20180718
  Transmission Date: 20181010
  Serious: No
  Sender: FDA-Public Use
  Company Number: US-INCYTE CORPORATION-2018IN004835

PATIENT

DRUGS (2)
  1. JAKAFI [Suspect]
     Active Substance: RUXOLITINIB
     Indication: MYELOFIBROSIS
     Dosage: 10 MG, BID
     Route: 048
     Dates: start: 20180511
  2. JAKAFI [Suspect]
     Active Substance: RUXOLITINIB
     Dosage: 1/2 10MG TAB DAILY
     Route: 048

REACTIONS (3)
  - Headache [Unknown]
  - Incorrect dose administered [Unknown]
  - Blood count abnormal [Unknown]
